FAERS Safety Report 18363187 (Version 1)
Quarter: 2020Q4

REPORT INFORMATION
  Report Type: Spontaneous
  Country: US (occurrence: US)
  Receive Date: 20201008
  Receipt Date: 20201008
  Transmission Date: 20210114
  Serious: Yes (Hospitalization, Other)
  Sender: FDA-Public Use
  Company Number: US-ASTRAZENECA-2020SF27919

PATIENT
  Sex: Male
  Weight: 204.1 kg

DRUGS (6)
  1. HYDROCORTISONE. [Concomitant]
     Active Substance: HYDROCORTISONE
     Dosage: DOSE AND FREQUENCY UNKNOWN
     Route: 065
  2. FASENRA [Interacting]
     Active Substance: BENRALIZUMAB
     Indication: ASTHMA
     Dosage: DOSE AND FREQUENCY UNKNOWN
     Route: 058
  3. SYMBICORT [Interacting]
     Active Substance: BUDESONIDE\FORMOTEROL FUMARATE DIHYDRATE
     Indication: ASTHMA
     Dosage: 160/4.5 MCG EVERY 12 HOURS
     Route: 055
  4. METFORMIN [Concomitant]
     Active Substance: METFORMIN HYDROCHLORIDE
     Dosage: DOSE AND FREQUENCY UNKNOWN
     Route: 065
  5. SYMBICORT [Suspect]
     Active Substance: BUDESONIDE\FORMOTEROL FUMARATE DIHYDRATE
     Indication: CHRONIC OBSTRUCTIVE PULMONARY DISEASE
     Dosage: 160/4.5 MCG EVERY 12 HOURS
     Route: 055
  6. CHLOROQUINE. [Concomitant]
     Active Substance: CHLOROQUINE
     Dosage: DOSE AND FREQUENCY UNKNOWN
     Route: 065

REACTIONS (10)
  - Asthma [Unknown]
  - Pain [Unknown]
  - Chest discomfort [Unknown]
  - Drug interaction [Unknown]
  - Nausea [Unknown]
  - Device use issue [Unknown]
  - Dyspnoea [Unknown]
  - Illness [Unknown]
  - Mobility decreased [Unknown]
  - Device defective [Unknown]
